FAERS Safety Report 9455262 (Version 1)
Quarter: 2013Q3

REPORT INFORMATION
  Report Type: Spontaneous
  Country: US (occurrence: None)
  Receive Date: 20130701
  Receipt Date: 20130701
  Transmission Date: 20140515
  Serious: Yes (Hospitalization)
  Sender: FDA-Public Use
  Company Number: US-000710

PATIENT
  Age: 59 Year
  Sex: Female

DRUGS (10)
  1. GATTEX [Suspect]
     Indication: SHORT-BOWEL SYNDROME
     Route: 058
     Dates: start: 20130401, end: 20130512
  2. SOLUTION FOR PARENTERAL NUTRITION [Concomitant]
  3. METHOTREXATE [Concomitant]
  4. VITAMIN B12 [Concomitant]
  5. COLECALCIFEROL [Concomitant]
  6. LYRICA [Concomitant]
  7. XIFAXAN [Concomitant]
  8. CIMZIA [Concomitant]
  9. ESTRADIOL [Concomitant]
  10. LOPERAMIDE [Concomitant]

REACTIONS (5)
  - Intestinal obstruction [None]
  - Device occlusion [None]
  - Pyrexia [None]
  - Hydronephrosis [None]
  - Weight abnormal [None]
